FAERS Safety Report 6143640-4 (Version None)
Quarter: 2009Q2

REPORT INFORMATION
  Report Type: 
  Country: None (occurrence: None)
  Receive Date: 20090403
  Receipt Date: 20090327
  Transmission Date: 20091009
  Serious: Yes (Death)
  Sender: FDA-Public Use
  Company Number: US-KINGPHARMUSA00001-K200900354

PATIENT
  Sex: Female

DRUGS (2)
  1. ALTACE [Suspect]
     Indication: HYPERTENSION
  2. PROCRIT                            /00909301/ [Suspect]
     Indication: NEPHROGENIC ANAEMIA
     Dosage: UNK

REACTIONS (2)
  - CARDIAC DISORDER [None]
  - DRUG INTERACTION [None]
